FAERS Safety Report 6557621-X (Version None)
Quarter: 2010Q1

REPORT INFORMATION
  Report Type: 
  Country: None (occurrence: None)
  Receive Date: 20100129
  Receipt Date: 20100126
  Transmission Date: 20100710
  Serious: Yes (Death, Hospitalization, Disabling)
  Sender: FDA-Public Use
  Company Number: JP-SANOFI-AVENTIS-2010SA004797

PATIENT
  Age: 83 Year
  Sex: Male
  Weight: 60 kg

DRUGS (27)
  1. PLAVIX [Suspect]
     Route: 048
     Dates: start: 20090911, end: 20090916
  2. PLAVIX [Suspect]
     Route: 048
     Dates: start: 20090917, end: 20090924
  3. ASPIRIN [Suspect]
     Route: 048
     Dates: start: 20090830, end: 20091014
  4. HEPARIN [Concomitant]
     Dosage: DOSE:10000 UNIT(S)
     Route: 042
     Dates: start: 20090911, end: 20090911
  5. BERAPROST SODIUM [Suspect]
     Route: 048
     Dates: start: 20090829, end: 20090930
  6. ALOSITOL [Concomitant]
     Route: 048
     Dates: start: 20090829, end: 20090930
  7. LIVACT [Concomitant]
     Route: 048
     Dates: start: 20090829, end: 20091008
  8. LASIX [Concomitant]
     Route: 048
     Dates: end: 20091014
  9. LASIX [Concomitant]
     Route: 065
     Dates: start: 20090911, end: 20090911
  10. LASIX [Concomitant]
     Route: 065
     Dates: start: 20090912, end: 20090912
  11. LASIX [Concomitant]
     Route: 065
     Dates: start: 20090913, end: 20090913
  12. LASIX [Concomitant]
     Route: 065
     Dates: start: 20090914, end: 20090925
  13. EPLERENONE [Concomitant]
     Route: 048
     Dates: start: 20090908, end: 20091014
  14. MUCOSOLVAN [Concomitant]
     Route: 048
     Dates: start: 20090830, end: 20090916
  15. TAKEPRON [Concomitant]
     Route: 048
     Dates: start: 20090830, end: 20091014
  16. COVERSYL /FRA/ [Concomitant]
     Route: 048
     Dates: start: 20090903, end: 20091014
  17. ALOSENN [Concomitant]
     Route: 048
     Dates: end: 20091014
  18. PORTOLAC [Concomitant]
     Route: 048
     Dates: start: 20090902, end: 20091014
  19. EPOGIN [Concomitant]
     Dosage: DOSE:12000 UNIT(S)
     Route: 065
     Dates: start: 20090923, end: 20090923
  20. BLOOD CELLS, PACKED HUMAN [Concomitant]
     Dosage: DOSE:2 UNIT(S)
     Route: 065
     Dates: start: 20090912, end: 20090912
  21. BLOOD CELLS, PACKED HUMAN [Concomitant]
     Dosage: DOSE:2 UNIT(S)
     Route: 065
     Dates: start: 20090914, end: 20090914
  22. BLOOD CELLS, PACKED HUMAN [Concomitant]
     Dosage: DOSE:2 UNIT(S)
     Route: 065
     Dates: start: 20090926, end: 20090926
  23. BLOOD CELLS, PACKED HUMAN [Concomitant]
     Dosage: DOSE:2 UNIT(S)
     Route: 065
     Dates: start: 20090928, end: 20090928
  24. BLOOD CELLS, PACKED HUMAN [Concomitant]
     Dosage: DOSE:2 UNIT(S)
     Route: 065
     Dates: start: 20091007, end: 20091007
  25. BLOOD CELLS, PACKED HUMAN [Concomitant]
     Dosage: DOSE:2 UNIT(S)
     Route: 065
     Dates: start: 20091008, end: 20091008
  26. KIDMIN [Concomitant]
     Route: 065
     Dates: start: 20090923, end: 20090925
  27. CONTRAST MEDIA [Suspect]
     Route: 065
     Dates: start: 20090911, end: 20090911

REACTIONS (6)
  - ANAEMIA [None]
  - COMA HEPATIC [None]
  - GASTROINTESTINAL HAEMORRHAGE [None]
  - HEPATIC CIRRHOSIS [None]
  - HEPATIC CONGESTION [None]
  - RENAL IMPAIRMENT [None]
